FAERS Safety Report 6244889-2 (Version None)
Quarter: 2009Q2

REPORT INFORMATION
  Report Type: 
  Country: None (occurrence: None)
  Receive Date: 20090625
  Receipt Date: 20090618
  Transmission Date: 20091009
  Serious: Yes (Death, Hospitalization)
  Sender: FDA-Public Use
  Company Number: B0580463A

PATIENT
  Age: 88 Year
  Sex: Female

DRUGS (2)
  1. COROPRES [Suspect]
     Dosage: 6.25MG PER DAY
     Route: 048
     Dates: start: 20080101, end: 20081211
  2. DIGOXIN [Suspect]
     Dosage: .12MG PER DAY
     Route: 048
     Dates: start: 20080101, end: 20081211

REACTIONS (3)
  - ATRIOVENTRICULAR BLOCK [None]
  - CARDIO-RESPIRATORY ARREST [None]
  - SYNCOPE [None]
